FAERS Safety Report 7813293-5 (Version None)
Quarter: 2011Q4

REPORT INFORMATION
  Report Type: 
  Country: None (occurrence: None)
  Receive Date: 20111013
  Receipt Date: 20111005
  Transmission Date: 20120403
  Serious: Yes (Life-Threatening, Hospitalization, Other)
  Sender: FDA-Public Use
  Company Number: US-RB-031489-11

PATIENT
  Sex: Male

DRUGS (14)
  1. LAMICTAL [Concomitant]
     Indication: PAIN
     Dosage: 300
     Route: 065
     Dates: start: 20060101
  2. ALCOHOL [Suspect]
     Indication: PRODUCT USED FOR UNKNOWN INDICATION
     Dosage: DOSING INFORMATION UNKNOWN
     Route: 065
  3. LYRICA [Concomitant]
     Indication: DEPRESSION
     Dosage: 200 BID
     Route: 065
     Dates: start: 20060101
  4. AMBIEN [Concomitant]
     Indication: INSOMNIA
     Dosage: 10
     Route: 065
     Dates: start: 20070101
  5. SUBOXONE [Suspect]
     Indication: PRODUCT USED FOR UNKNOWN INDICATION
     Dosage: 6 MG
     Route: 065
  6. LYRICA [Concomitant]
     Indication: NEURALGIA
     Dosage: 200 BID
     Route: 065
     Dates: start: 20060101
  7. LAMICTAL [Concomitant]
     Dosage: 300
     Route: 065
     Dates: start: 20060101
  8. KLONOPIN [Concomitant]
     Indication: PAIN
     Dosage: 1 MG
     Route: 065
     Dates: start: 20090101
  9. KLONOPIN [Concomitant]
     Indication: ANXIETY
     Dosage: 1 MG
     Route: 065
     Dates: start: 20090101
  10. CYMBALTA [Concomitant]
     Indication: NEURALGIA
     Dosage: 120
     Route: 065
     Dates: start: 20070101
  11. ABILIFY [Concomitant]
     Indication: BIPOLAR DISORDER
     Dosage: 20
     Route: 065
     Dates: start: 20060101
  12. ESKALITH [Concomitant]
     Indication: BIPOLAR DISORDER
     Dosage: 1/25
     Route: 065
     Dates: start: 20060101
  13. KLONOPIN [Concomitant]
     Dosage: 1 MG
     Route: 065
     Dates: start: 20090101
  14. ZANAFLEX [Concomitant]
     Indication: MYALGIA
     Dosage: 4 MG
     Route: 065
     Dates: start: 20070101

REACTIONS (7)
  - STRIDOR [None]
  - OFF LABEL USE [None]
  - COMA [None]
  - SOMNOLENCE [None]
  - TOXICITY TO VARIOUS AGENTS [None]
  - OVERDOSE [None]
  - GLOSSOPTOSIS [None]
